FAERS Safety Report 8504578-8 (Version None)
Quarter: 2012Q3

REPORT INFORMATION
  Report Type: 
  Country: None (occurrence: None)
  Receive Date: 20120711
  Receipt Date: 20120704
  Transmission Date: 20120928
  Serious: Yes (Hospitalization, Other)
  Sender: FDA-Public Use
  Company Number: AR-ROCHE-1074149

PATIENT
  Sex: Female

DRUGS (1)
  1. XOLAIR [Suspect]
     Indication: ASTHMA
     Dates: start: 20110101

REACTIONS (10)
  - DYSPNOEA [None]
  - ABDOMINAL DISTENSION [None]
  - HYPERSENSITIVITY [None]
  - PNEUMONIA [None]
  - SWELLING [None]
  - SKIN DISCOLOURATION [None]
  - BLOOD PRESSURE INCREASED [None]
  - FATIGUE [None]
  - BRONCHITIS [None]
  - PYREXIA [None]
